FAERS Safety Report 5653132-4 (Version None)
Quarter: 2008Q1

REPORT INFORMATION
  Report Type: 
  Country: None (occurrence: None)
  Receive Date: 20080306
  Receipt Date: 20080227
  Transmission Date: 20080703
  Serious: Yes (Death, Hospitalization)
  Sender: FDA-Public Use
  Company Number: HK-WYE-H01962608

PATIENT
  Age: 51 Year
  Sex: Male
  Weight: 67 kg

DRUGS (13)
  1. TORISEL [Suspect]
     Indication: CHRONIC MYELOID LEUKAEMIA
     Route: 042
     Dates: start: 20071023, end: 20071106
  2. TORISEL [Suspect]
     Indication: CHROMOSOME ANALYSIS ABNORMAL
  3. SENOKOT [Concomitant]
  4. LACTULOSE [Concomitant]
  5. FUROSEMIDE [Concomitant]
  6. CHLORHEXIDINE GLUCONATE [Concomitant]
  7. MAXOLON [Concomitant]
  8. CALTRATE PLUS [Concomitant]
  9. SLOW-K [Concomitant]
  10. PHENSEDYL [Concomitant]
  11. IMATINIB MESYLATE [Suspect]
     Indication: CHRONIC MYELOID LEUKAEMIA
     Route: 048
     Dates: start: 20071023, end: 20071111
  12. IMATINIB MESYLATE [Suspect]
     Indication: CHROMOSOME ANALYSIS ABNORMAL
  13. ALLOPURINOL [Concomitant]

REACTIONS (7)
  - CARDIAC FAILURE CONGESTIVE [None]
  - DISEASE PROGRESSION [None]
  - FACE OEDEMA [None]
  - FEBRILE NEUTROPENIA [None]
  - LEFT VENTRICULAR DYSFUNCTION [None]
  - PERICARDIAL EFFUSION [None]
  - PLEURAL EFFUSION [None]
